FAERS Safety Report 17009296 (Version 2)
Quarter: 2019Q4

REPORT INFORMATION
  Report Type: Spontaneous
  Country: GB (occurrence: GB)
  Receive Date: 20191108
  Receipt Date: 20191127
  Transmission Date: 20200122
  Serious: Yes (Life-Threatening)
  Sender: FDA-Public Use
  Company Number: GB-ROCHE-2454688

PATIENT
  Sex: Female

DRUGS (9)
  1. OCRELIZUMAB. [Suspect]
     Active Substance: OCRELIZUMAB
     Indication: RELAPSING-REMITTING MULTIPLE SCLEROSIS
     Route: 042
     Dates: start: 20190923
  2. PREGABALIN. [Concomitant]
     Active Substance: PREGABALIN
  3. BACLOFEN. [Concomitant]
     Active Substance: BACLOFEN
  4. CLONAZEPAM. [Concomitant]
     Active Substance: CLONAZEPAM
  5. BUPRENORPHINE. [Concomitant]
     Active Substance: BUPRENORPHINE
  6. BETAHISTINE [Concomitant]
     Active Substance: BETAHISTINE
  7. FOLIC ACID. [Concomitant]
     Active Substance: FOLIC ACID
  8. BUTRANS [Concomitant]
     Active Substance: BUPRENORPHINE
  9. METHYLPHENIDATE. [Concomitant]
     Active Substance: METHYLPHENIDATE

REACTIONS (11)
  - Oedema peripheral [Recovering/Resolving]
  - Paraesthesia [Unknown]
  - Flushing [Unknown]
  - Hypersensitivity [Recovered/Resolved]
  - Dyspnoea [Recovered/Resolved]
  - Diarrhoea [Not Recovered/Not Resolved]
  - Anaphylactic reaction [Not Recovered/Not Resolved]
  - Throat irritation [Recovered/Resolved]
  - Pruritus [Unknown]
  - Dysphagia [Recovered/Resolved]
  - Malaise [Unknown]

NARRATIVE: CASE EVENT DATE: 20190927
